FAERS Safety Report 4729278-1 (Version None)
Quarter: 2005Q3

REPORT INFORMATION
  Report Type: 
  Country: None (occurrence: None)
  Receive Date: 20050729
  Receipt Date: 20040907
  Transmission Date: 20060218
  Serious: No
  Sender: FDA-Public Use
  Company Number: US-GLAXOSMITHKLINE-A0524735A

PATIENT
  Age: 14 Year
  Sex: Female

DRUGS (1)
  1. IMITREX [Suspect]
     Indication: MIGRAINE
     Dosage: 100MG PER DAY
     Route: 048
     Dates: start: 20040907, end: 20040907

REACTIONS (3)
  - CHEST DISCOMFORT [None]
  - MUSCLE TIGHTNESS [None]
  - ORAL DISCOMFORT [None]
